FAERS Safety Report 25566812 (Version 1)
Quarter: 2025Q3

REPORT INFORMATION
  Report Type: Spontaneous
  Country: US (occurrence: US)
  Receive Date: 20250716
  Receipt Date: 20250716
  Transmission Date: 20251020
  Serious: No
  Sender: NOVO NORDISK
  Company Number: US-NOVOPROD-1263423

PATIENT
  Age: 22 Year
  Sex: Female
  Weight: 89.6 kg

DRUGS (1)
  1. OZEMPIC [Suspect]
     Active Substance: SEMAGLUTIDE
     Indication: Weight control
     Dosage: UNK
     Route: 058

REACTIONS (11)
  - Insomnia [Unknown]
  - Dry mouth [Unknown]
  - Blepharospasm [Unknown]
  - Unevaluable event [Unknown]
  - Panic attack [Unknown]
  - Vomiting projectile [Unknown]
  - Dyspnoea [Unknown]
  - Nausea [Unknown]
  - Abdominal pain upper [Unknown]
  - Diarrhoea [Unknown]
  - Product use in unapproved indication [Unknown]
